FAERS Safety Report 9424403 (Version 1)
Quarter: 2013Q3

REPORT INFORMATION
  Report Type: Spontaneous
  Country: US (occurrence: None)
  Receive Date: 20130726
  Receipt Date: 20130726
  Transmission Date: 20140515
  Serious: Yes (Other)
  Sender: FDA-Public Use
  Company Number: None

PATIENT
  Age: 94 Year
  Sex: Female
  Weight: 66.23 kg

DRUGS (1)
  1. AMINOCAPROIC ACID [Suspect]
     Indication: HAEMATURIA
     Route: 048
     Dates: start: 20130707, end: 20130709

REACTIONS (3)
  - Renal impairment [None]
  - Blood creatinine increased [None]
  - Creatinine renal clearance decreased [None]
